FAERS Safety Report 5270445-9 (Version None)
Quarter: 2007Q1

REPORT INFORMATION
  Report Type: 
  Country: None (occurrence: None)
  Receive Date: 20070320
  Receipt Date: 20070308
  Transmission Date: 20070707
  Serious: Yes (Other)
  Sender: FDA-Public Use
  Company Number: PL-PFIZER INC-2007019364

PATIENT
  Age: 72 Year
  Sex: Male

DRUGS (3)
  1. CARDURA [Suspect]
  2. PRESTARIUM [Concomitant]
  3. CONCOR [Concomitant]

REACTIONS (1)
  - GASTRITIS EROSIVE [None]
